FAERS Safety Report 8607465 (Version 3)
Quarter: 2014Q2

REPORT INFORMATION
  Report Type: Spontaneous
  Country: US (occurrence: US)
  Receive Date: 20120611
  Receipt Date: 20140422
  Transmission Date: 20141212
  Serious: Yes (Hospitalization, Other)
  Sender: FDA-Public Use
  Company Number: US-ASTRAZENECA-2012SE35415

PATIENT
  Age: 67 Year
  Sex: Male

DRUGS (18)
  1. NEXIUM [Suspect]
     Indication: DYSPEPSIA
     Route: 048
     Dates: start: 200707
  2. NEXIUM [Suspect]
     Indication: OESOPHAGEAL DISORDER
     Route: 048
     Dates: start: 200707
  3. NEXIUM [Suspect]
     Indication: DYSPEPSIA
     Route: 048
     Dates: start: 200804
  4. NEXIUM [Suspect]
     Indication: OESOPHAGEAL DISORDER
     Route: 048
     Dates: start: 200804
  5. PRILOSEC [Suspect]
     Route: 048
     Dates: start: 200707, end: 200804
  6. ACIPHEX [Concomitant]
     Dates: start: 2003
  7. ZANTAC [Concomitant]
     Dates: start: 2002
  8. TAGAMET [Concomitant]
     Dates: start: 2002
  9. TUMS [Concomitant]
  10. ALKA-SEITZER [Concomitant]
  11. PEPTO-BISMOL [Concomitant]
  12. RAPAMUNE [Concomitant]
     Route: 048
     Dates: start: 200707
  13. MYFORTIC [Concomitant]
     Dates: start: 200707
  14. LYRICA [Concomitant]
     Dates: start: 200707
  15. TORESEMIDE [Concomitant]
     Dates: start: 200707
  16. ATORVASTATIN [Concomitant]
     Dates: start: 200707
  17. RAMIPRIL [Concomitant]
     Dates: start: 200707
  18. ASPIRIN [Concomitant]
     Dates: start: 200707

REACTIONS (14)
  - Ascites [Unknown]
  - Pleural effusion [Unknown]
  - Inguinal hernia [Unknown]
  - Umbilical hernia [Unknown]
  - Osteoporosis [Unknown]
  - Bone density decreased [Unknown]
  - Rib fracture [Unknown]
  - Upper limb fracture [Unknown]
  - Foot fracture [Unknown]
  - Calcium deficiency [Unknown]
  - Androgen deficiency [Unknown]
  - Vitamin D deficiency [Unknown]
  - Lower limb fracture [Unknown]
  - Fall [Unknown]
